FAERS Safety Report 6504152-9 (Version None)
Quarter: 2009Q4

REPORT INFORMATION
  Report Type: 
  Country: None (occurrence: None)
  Receive Date: 20091217
  Receipt Date: 20091208
  Transmission Date: 20100525
  Serious: Yes (Hospitalization)
  Sender: FDA-Public Use
  Company Number: US-MYLANLABS-2009S1021183

PATIENT
  Age: 78 Year
  Sex: Male

DRUGS (10)
  1. INVESTIGATIONAL DRUG [Suspect]
     Route: 048
     Dates: end: 20090218
  2. METOPROLOL TARTRATE [Suspect]
     Indication: HYPERTENSION
     Route: 048
     Dates: start: 20090218, end: 20090227
  3. METOPROLOL TARTRATE [Suspect]
     Indication: CORONARY ARTERY DISEASE
     Route: 048
     Dates: start: 20090218, end: 20090227
  4. METOPROLOL TARTRATE [Suspect]
     Route: 048
     Dates: start: 20090218, end: 20090227
  5. ISOSORBIDE [Concomitant]
     Route: 048
  6. CLOPIDOGREL BISULFATE [Concomitant]
     Route: 048
  7. FUROSEMIDE [Concomitant]
     Route: 048
     Dates: end: 20090216
  8. ASPIRIN [Concomitant]
     Route: 048
  9. SIMVASTATIN [Concomitant]
     Route: 048
  10. FERROUS SULFATE TAB [Concomitant]
     Route: 048

REACTIONS (2)
  - CARDIAC FAILURE CONGESTIVE [None]
  - PLEURAL EFFUSION [None]
